FAERS Safety Report 6190758-6 (Version None)
Quarter: 2009Q2

REPORT INFORMATION
  Report Type: 
  Country: None (occurrence: None)
  Receive Date: 20090513
  Receipt Date: 20090513
  Transmission Date: 20091009
  Serious: No
  Sender: FDA-Public Use
  Company Number: None

PATIENT
  Age: 35 Year
  Sex: Female
  Weight: 70.3075 kg

DRUGS (1)
  1. ZYPREXA [Suspect]
     Indication: BIPOLAR I DISORDER
     Dosage: 10 MG ONCE AT NIGHT PO
     Route: 048
     Dates: start: 20010101, end: 20090512

REACTIONS (2)
  - DYSTONIA [None]
  - GAIT DISTURBANCE [None]
